FAERS Safety Report 19478998 (Version 1)
Quarter: 2021Q3

REPORT INFORMATION
  Report Type: Spontaneous
  Country: DE (occurrence: DE)
  Receive Date: 20210701
  Receipt Date: 20210701
  Transmission Date: 20211014
  Serious: Yes (Other)
  Sender: FDA-Public Use
  Company Number: DE-TEVA-2021-DE-1928954

PATIENT
  Age: 54 Year
  Sex: Male

DRUGS (20)
  1. PREDNISOLONE. [Suspect]
     Active Substance: PREDNISOLONE
     Indication: CENTRAL NERVOUS SYSTEM LYMPHOMA
     Dosage: CYCLE?A, DAY 1?4 ROUTE: {INTRACEREBROVENTRICULAR}
     Route: 050
  2. METHOTREXATE. [Suspect]
     Active Substance: METHOTREXATE
     Dosage: CYCLE?B; 5 G/M2; 0.5 G/M2 INFUSION OVER 30 MINUTES AND 4.5 G/M2 INFUSION OVER 23.5 HOURS ON DAY 1
     Route: 041
  3. VINCRISTINE [Suspect]
     Active Substance: VINCRISTINE
     Dosage: CYCLE?B, DAY 1
     Route: 042
  4. PREDNISOLONE. [Suspect]
     Active Substance: PREDNISOLONE
     Dosage: CYCLE?C, DAY 3?6, ROUTE: {INTRACEREBROVENTRICULAR}
     Route: 050
  5. ARA C [Suspect]
     Active Substance: CYTARABINE
     Dosage: CYCLE?B, DAY 5, ROUTE: {INTRACEREBROVENTRICULAR}; NOCH IN DOSAGE TEXT EINGETRAGEN
     Route: 050
  6. VINCRISTINE [Suspect]
     Active Substance: VINCRISTINE
     Indication: CENTRAL NERVOUS SYSTEM LYMPHOMA
     Dosage: CYCLE?A, DAY 1
     Route: 042
  7. ARA C [Suspect]
     Active Substance: CYTARABINE
     Dosage: CYCLE?C, 3G/M2, 3 HOUR INFUSION, DAY 1?2
     Route: 041
  8. METHOTREXATE. [Suspect]
     Active Substance: METHOTREXATE
     Indication: CENTRAL NERVOUS SYSTEM LYMPHOMA
     Dosage: CYCLE?A; 5 G/M2; 0.5 G/M2 INFUSION OVER 30 MINUTES AND 4.5 G/M2 INFUSION OVER 23.5 HOURS ON DAY 1
     Route: 041
  9. IFOSFAMIDE. [Suspect]
     Active Substance: IFOSFAMIDE
     Indication: CENTRAL NERVOUS SYSTEM LYMPHOMA
     Dosage: CYCLE?A, 1 HOUR INFUSION, DAY 2?5
     Route: 041
  10. CYCLOPHOSPHAMIDE. [Suspect]
     Active Substance: CYCLOPHOSPHAMIDE
     Indication: CENTRAL NERVOUS SYSTEM LYMPHOMA
     Dosage: CYCLE?B, 1 HOUR INFUSION, DAY 2?5
     Route: 041
  11. METHOTREXATE. [Suspect]
     Active Substance: METHOTREXATE
     Dosage: CYCLE?A, DAY 1?4
     Route: 050
  12. METHOTREXATE. [Suspect]
     Active Substance: METHOTREXATE
     Dosage: CYCLE?C, DAY 3?6 AS ICV
     Route: 050
  13. DEXAMETHASONE. [Suspect]
     Active Substance: DEXAMETHASONE
     Dosage: CYCLE?B, DAY 2?5
     Route: 048
  14. ARA C [Suspect]
     Active Substance: CYTARABINE
     Dosage: CYCLE?C, DAY 7, ROUTE: {INTRACEREBROVENTRICULAR}
     Route: 050
  15. PREDNISOLONE. [Suspect]
     Active Substance: PREDNISOLONE
     Dosage: CYCLE?B, DAY 1?4 , ROUTE: {INTRACEREBROVENTRICULAR}
     Route: 050
  16. ARA C [Suspect]
     Active Substance: CYTARABINE
     Indication: CENTRAL NERVOUS SYSTEM LYMPHOMA
     Dosage: CYCLE?A, DAY 5, ROUTE: {INTRACEREBROVENTRICULAR}
     Route: 050
  17. METHOTREXATE. [Suspect]
     Active Substance: METHOTREXATE
     Dosage: CYCLE?B, DAY 1?4 AS ICV
     Route: 050
  18. DEXAMETHASONE. [Suspect]
     Active Substance: DEXAMETHASONE
     Indication: CENTRAL NERVOUS SYSTEM LYMPHOMA
     Dosage: CYCLE?A, DAY 2?5
     Route: 048
  19. DEXAMETHASONE. [Suspect]
     Active Substance: DEXAMETHASONE
     Dosage: CYCLE?C, DAY 3?7
     Route: 048
  20. VINDESINE [Suspect]
     Active Substance: VINDESINE
     Indication: CENTRAL NERVOUS SYSTEM LYMPHOMA
     Dosage: CYCLE?C, DAY 1
     Route: 042

REACTIONS (1)
  - Staphylococcal infection [Unknown]
